FAERS Safety Report 7727835-1 (Version None)
Quarter: 2011Q3

REPORT INFORMATION
  Report Type: 
  Country: None (occurrence: None)
  Receive Date: 20110905
  Receipt Date: 20110825
  Transmission Date: 20111222
  Serious: Yes (Hospitalization)
  Sender: FDA-Public Use
  Company Number: US-BIOGENIDEC-2006BI006541

PATIENT
  Sex: Female

DRUGS (3)
  1. AVONEX [Suspect]
     Indication: MULTIPLE SCLEROSIS
     Route: 030
     Dates: start: 19960701, end: 20030801
  2. AVONEX [Suspect]
     Route: 030
     Dates: start: 20030801, end: 20050101
  3. AVONEX [Suspect]
     Route: 030
     Dates: start: 20050301, end: 20060514

REACTIONS (10)
  - BASAL CELL CARCINOMA [None]
  - INJECTION SITE HAEMORRHAGE [None]
  - INJECTION SITE PAIN [None]
  - MENINGITIS [None]
  - MALIGNANT MELANOMA [None]
  - SQUAMOUS CELL CARCINOMA OF SKIN [None]
  - MULTIPLE SCLEROSIS RELAPSE [None]
  - SCAR [None]
  - PYREXIA [None]
  - MEMORY IMPAIRMENT [None]
